FAERS Safety Report 5264696-7 (Version None)
Quarter: 2007Q1

REPORT INFORMATION
  Report Type: 
  Country: None (occurrence: None)
  Receive Date: 20070314
  Receipt Date: 20070301
  Transmission Date: 20070707
  Serious: Yes (Hospitalization, Other)
  Sender: FDA-Public Use
  Company Number: PHNU2007DE01067

PATIENT
  Age: 65 Year
  Sex: Male

DRUGS (1)
  1. SANDIMMUNE [Suspect]
     Indication: HEART TRANSPLANT

REACTIONS (2)
  - OEDEMA [None]
  - ORAL INTAKE REDUCED [None]
